FAERS Safety Report 21946329 (Version 3)
Quarter: 2023Q1

REPORT INFORMATION
  Report Type: Spontaneous
  Country: US (occurrence: US)
  Receive Date: 20230202
  Receipt Date: 20230220
  Transmission Date: 20230418
  Serious: Yes (Hospitalization, Other)
  Sender: FDA-Public Use
  Company Number: US-AMGEN-USASP2023013054

PATIENT
  Age: 80 Year
  Sex: Female
  Weight: 48.1 kg

DRUGS (1)
  1. PROLIA [Suspect]
     Active Substance: DENOSUMAB
     Indication: Osteoporosis postmenopausal
     Dosage: 60 MILLIGRAM, Q6MO
     Route: 058
     Dates: start: 20210202, end: 20210823

REACTIONS (3)
  - Osteonecrosis of jaw [Unknown]
  - Osteomyelitis [Unknown]
  - Tooth extraction [Unknown]

NARRATIVE: CASE EVENT DATE: 20210824
